FAERS Safety Report 10272458 (Version 1)
Quarter: 2014Q2

REPORT INFORMATION
  Report Type: Spontaneous
  Country: CN (occurrence: None)
  Receive Date: 20140627
  Receipt Date: 20140627
  Transmission Date: 20141212
  Serious: Yes (Other)
  Sender: FDA-Public Use
  Company Number: SYM-2014-22379

PATIENT
  Age: 28 Year
  Sex: Male

DRUGS (1)
  1. IMIQUIMOD CREAM, 5% [Suspect]
     Indication: ANOGENITAL WARTS
     Dosage: STOPPED
     Route: 061

REACTIONS (4)
  - Vitiligo [None]
  - Application site erythema [None]
  - Application site irritation [None]
  - Application site reaction [None]
